FAERS Safety Report 5891647-4 (Version None)
Quarter: 2008Q3

REPORT INFORMATION
  Report Type: 
  Country: None (occurrence: None)
  Receive Date: 20080908
  Receipt Date: 20080729
  Transmission Date: 20090109
  Serious: No
  Sender: FDA-Public Use
  Company Number: 002#2#2008-00339

PATIENT
  Age: 75 Year
  Sex: Female
  Weight: 45.3597 kg

DRUGS (3)
  1. NEUPRO [Suspect]
     Indication: PARKINSON'S DISEASE
     Dosage: MG/24H,1 IN 1 D,TRANSDERMAL
     Route: 062
     Dates: start: 20080201
  2. LIPITOR [Concomitant]
  3. MIRAPEX [Concomitant]

REACTIONS (1)
  - SOMNOLENCE [None]
